FAERS Safety Report 13192075 (Version 1)
Quarter: 2017Q1

REPORT INFORMATION
  Report Type: Spontaneous
  Country: US (occurrence: US)
  Receive Date: 20170207
  Receipt Date: 20170207
  Transmission Date: 20170428
  Serious: No
  Sender: FDA-Public Use
  Company Number: US-PFIZER INC-2017052006

PATIENT
  Age: 63 Year
  Sex: Male
  Weight: 65.32 kg

DRUGS (1)
  1. VIAGRA [Suspect]
     Active Substance: SILDENAFIL CITRATE
     Dosage: 10 MG, UNK

REACTIONS (2)
  - Headache [Recovering/Resolving]
  - Flushing [Recovering/Resolving]
